FAERS Safety Report 9528662 (Version 1)
Quarter: 2013Q1

REPORT INFORMATION
  Report Type: Spontaneous
  Country: US (occurrence: None)
  Receive Date: 20130322
  Receipt Date: 20130322
  Transmission Date: 20140127
  Serious: Yes (Other)
  Sender: FDA-Public Use
  Company Number: PHEH2012US008969

PATIENT
  Sex: Male

DRUGS (1)
  1. NEORAL [Suspect]

REACTIONS (2)
  - Myocardial infarction [None]
  - Nasopharyngitis [None]
